FAERS Safety Report 17653432 (Version 2)
Quarter: 2021Q3

REPORT INFORMATION
  Report Type: Report from Study
  Country: FR (occurrence: FR)
  Receive Date: 20200409
  Receipt Date: 20210927
  Transmission Date: 20211014
  Serious: Yes (Death, Other)
  Sender: FDA-Public Use
  Company Number: FR-JAZZ-2020-FR-004861

PATIENT

DRUGS (5)
  1. DEFITELIO [Suspect]
     Active Substance: DEFIBROTIDE SODIUM
     Indication: VENOOCCLUSIVE DISEASE
     Dosage: THERAPY DETAILS NOT PROVIDED
     Route: 065
     Dates: start: 20190922, end: 20190927
  2. METHYLPREDNISOLONE. [Concomitant]
     Active Substance: METHYLPREDNISOLONE
     Indication: PROPHYLAXIS
  3. SODIUM HEPARIN [Concomitant]
     Active Substance: HEPARIN SODIUM
     Indication: PROPHYLAXIS
  4. URSODEOXYCHOLIC ACID [Concomitant]
     Active Substance: URSODIOL
     Indication: PROPHYLAXIS
  5. SODIUM [Concomitant]
     Active Substance: SODIUM
     Indication: PROPHYLAXIS

REACTIONS (3)
  - Off label use [Unknown]
  - Venoocclusive disease [Unknown]
  - Death [Fatal]

NARRATIVE: CASE EVENT DATE: 20190922
